FAERS Safety Report 8815848 (Version 2)
Quarter: 2013Q1

REPORT INFORMATION
  Report Type: Spontaneous
  Country: US (occurrence: US)
  Receive Date: 20120928
  Receipt Date: 20130221
  Transmission Date: 20140127
  Serious: Yes (Other)
  Sender: FDA-Public Use
  Company Number: US-009507513-1209USA007415

PATIENT
  Age: 52 Year
  Sex: Female
  Weight: 70.3 kg

DRUGS (2)
  1. EMEND FOR INJECTION [Suspect]
     Dosage: UNK
     Route: 042
  2. TAXOTERE [Concomitant]

REACTIONS (5)
  - Infusion site extravasation [Unknown]
  - Infusion site ulcer [Recovering/Resolving]
  - Infusion site erythema [Unknown]
  - Infusion site pain [Unknown]
  - Infusion site induration [Recovering/Resolving]
